FAERS Safety Report 25417424 (Version 1)
Quarter: 2025Q2

REPORT INFORMATION
  Report Type: Spontaneous
  Country: US (occurrence: US)
  Receive Date: 20250610
  Receipt Date: 20250610
  Transmission Date: 20250717
  Serious: No
  Sender: BLUEPRINT MEDICINES
  Company Number: US-Blueprint Medicines Corporation-2025-AER-01224

PATIENT
  Age: 29 Year
  Sex: Female

DRUGS (8)
  1. AYVAKIT [Suspect]
     Active Substance: AVAPRITINIB
     Indication: Indolent systemic mastocytosis
     Route: 048
  2. ZOFRAN [Concomitant]
     Active Substance: ONDANSETRON HYDROCHLORIDE
     Indication: Product used for unknown indication
     Route: 065
  3. CROMOLYN [Concomitant]
     Active Substance: CROMOLYN
     Indication: Product used for unknown indication
     Route: 065
  4. EPINEPHRINE [Concomitant]
     Active Substance: EPINEPHRINE
     Indication: Product used for unknown indication
     Route: 065
  5. FAMOTIDINE [Concomitant]
     Active Substance: FAMOTIDINE
     Indication: Product used for unknown indication
     Route: 065
  6. FEXOFENADINE [Concomitant]
     Active Substance: FEXOFENADINE HYDROCHLORIDE
     Indication: Product used for unknown indication
     Route: 065
  7. MONTELUKAST [Concomitant]
     Active Substance: MONTELUKAST
     Indication: Product used for unknown indication
     Route: 065
  8. KETOTIFEN [Concomitant]
     Active Substance: KETOTIFEN
     Indication: Product used for unknown indication
     Route: 065

REACTIONS (2)
  - Pregnancy [Unknown]
  - No adverse event [Unknown]
